FAERS Safety Report 18376601 (Version 3)
Quarter: 2021Q1

REPORT INFORMATION
  Report Type: Report from Study
  Country: FR (occurrence: FR)
  Receive Date: 20201013
  Receipt Date: 20210128
  Transmission Date: 20210419
  Serious: Yes (Other)
  Sender: FDA-Public Use
  Company Number: FR-JNJFOC-20201002288

PATIENT
  Age: 23 Year
  Sex: Male
  Weight: 68 kg

DRUGS (10)
  1. USTEKINUMAB [Suspect]
     Active Substance: USTEKINUMAB
     Route: 058
     Dates: start: 202004, end: 20200929
  2. CLOBEX                             /00012002/ [Concomitant]
     Active Substance: CLOXACILLIN SODIUM
     Indication: PSORIASIS
     Route: 065
     Dates: start: 20161020, end: 20200929
  3. USTEKINUMAB [Suspect]
     Active Substance: USTEKINUMAB
     Route: 058
     Dates: start: 201809, end: 20191216
  4. CICLOSPORINE [Concomitant]
     Active Substance: CYCLOSPORINE
     Route: 065
     Dates: start: 20170421
  5. CICLOSPORINE [Concomitant]
     Active Substance: CYCLOSPORINE
     Route: 065
     Dates: start: 20171019
  6. DAIVOBET [Concomitant]
     Active Substance: BETAMETHASONE DIPROPIONATE\CALCIPOTRIENE
     Indication: PRODUCT USED FOR UNKNOWN INDICATION
     Route: 065
     Dates: start: 20161020
  7. CICLOSPORINE [Concomitant]
     Active Substance: CYCLOSPORINE
     Route: 065
     Dates: start: 20160426
  8. TRIDESONIT [Concomitant]
     Active Substance: DESONIDE
     Indication: PRODUCT USED FOR UNKNOWN INDICATION
     Route: 065
     Dates: start: 20161020
  9. USTEKINUMAB [Suspect]
     Active Substance: USTEKINUMAB
     Indication: PSORIASIS
     Route: 058
     Dates: start: 201808, end: 201809
  10. CICLOSPORINE [Concomitant]
     Active Substance: CYCLOSPORINE
     Indication: PRODUCT USED FOR UNKNOWN INDICATION
     Route: 065
     Dates: start: 20160426

REACTIONS (1)
  - Suspected COVID-19 [Recovered/Resolved]

NARRATIVE: CASE EVENT DATE: 202003
